FAERS Safety Report 6338651-X (Version None)
Quarter: 2009Q3

REPORT INFORMATION
  Report Type: 
  Country: None (occurrence: None)
  Receive Date: 20090903
  Receipt Date: 20090824
  Transmission Date: 20100115
  Serious: Yes (Hospitalization)
  Sender: FDA-Public Use
  Company Number: US-BIOGENIDEC-2008BI000695

PATIENT
  Age: 54 Year
  Sex: Female
  Weight: 75 kg

DRUGS (3)
  1. AVONEX [Suspect]
     Indication: MULTIPLE SCLEROSIS
     Route: 030
     Dates: start: 20040701, end: 20040701
  2. AVONEX [Suspect]
     Route: 030
     Dates: start: 20040701
  3. AVONEX [Suspect]
     Route: 030
     Dates: start: 20050713, end: 20080510

REACTIONS (19)
  - BLOOD POTASSIUM DECREASED [None]
  - DEHYDRATION [None]
  - DIZZINESS [None]
  - DRUG SPECIFIC ANTIBODY PRESENT [None]
  - FALL [None]
  - HEADACHE [None]
  - HEARING IMPAIRED [None]
  - HYPOTENSION [None]
  - INFLUENZA [None]
  - MEMORY IMPAIRMENT [None]
  - MICTURITION URGENCY [None]
  - MYOCARDIAL INFARCTION [None]
  - OSTEOPENIA [None]
  - OSTEOPOROSIS [None]
  - OVERWEIGHT [None]
  - PELVIC FRACTURE [None]
  - URINARY TRACT INFECTION [None]
  - VERTIGO [None]
  - WEIGHT DECREASED [None]
